FAERS Safety Report 21936876 (Version 1)
Quarter: 2023Q1

REPORT INFORMATION
  Report Type: Spontaneous
  Country: GB (occurrence: GB)
  Receive Date: 20230201
  Receipt Date: 20230201
  Transmission Date: 20230418
  Serious: Yes (Hospitalization, Disabling, Other)
  Sender: FDA-Public Use
  Company Number: GB-MHRA-MED-202301182059153430-YLTKP

PATIENT
  Age: 31 Year
  Sex: Female

DRUGS (11)
  1. HYDROCORTISONE [Suspect]
     Active Substance: HYDROCORTISONE
     Indication: Adverse drug reaction
     Route: 065
     Dates: start: 20200301, end: 20220825
  2. HYDROCORTISONE [Suspect]
     Active Substance: HYDROCORTISONE
     Indication: Eczema
  3. MOMETASONE [Suspect]
     Active Substance: MOMETASONE
     Indication: Adverse drug reaction
     Dosage: TO BEGIN WITH IT WAS EVERY DAY. THEN ONCE, TWO TIMES A WEEK;
     Route: 065
     Dates: start: 20210501, end: 20220825
  4. MOMETASONE [Suspect]
     Active Substance: MOMETASONE
     Indication: Eczema
  5. EUMOVATE [Suspect]
     Active Substance: CLOBETASONE BUTYRATE
     Indication: Adverse drug reaction
     Route: 065
     Dates: start: 20210501, end: 20220825
  6. EUMOVATE [Suspect]
     Active Substance: CLOBETASONE BUTYRATE
     Indication: Eczema
  7. CETIRIZINE [Concomitant]
     Active Substance: CETIRIZINE HYDROCHLORIDE
     Indication: Adverse drug reaction
  8. CETIRIZINE [Concomitant]
     Active Substance: CETIRIZINE HYDROCHLORIDE
     Indication: Therapy cessation
  9. ELIDEL [Concomitant]
     Active Substance: PIMECROLIMUS
     Indication: Adverse drug reaction
     Dates: end: 20220825
  10. ELIDEL [Concomitant]
     Active Substance: PIMECROLIMUS
     Indication: Therapy cessation
  11. FOLIC ACID [Concomitant]
     Active Substance: FOLIC ACID
     Indication: Vitamin supplementation

REACTIONS (10)
  - Erythema [Not Recovered/Not Resolved]
  - Skin exfoliation [Not Recovered/Not Resolved]
  - Skin weeping [Not Recovered/Not Resolved]
  - Depression [Not Recovered/Not Resolved]
  - Anxiety [Not Recovered/Not Resolved]
  - Helplessness [Not Recovered/Not Resolved]
  - Sleep disorder [Not Recovered/Not Resolved]
  - Topical steroid withdrawal reaction [Not Recovered/Not Resolved]
  - Maternal exposure during breast feeding [Unknown]
  - Maternal exposure during pregnancy [Unknown]
